FAERS Safety Report 7034820-4 (Version None)
Quarter: 2010Q4

REPORT INFORMATION
  Report Type: 
  Country: None (occurrence: None)
  Receive Date: 20101008
  Receipt Date: 20100930
  Transmission Date: 20110411
  Serious: Yes (Other)
  Sender: FDA-Public Use
  Company Number: GB-ROCHE-691174

PATIENT
  Sex: Male

DRUGS (3)
  1. CAPECITABINE [Suspect]
     Indication: COLON CANCER
     Dosage: DOSE REPORTED AS 70000 MG.  CYCLE 1. DATE OF MOST RECENT DOSE: 28 JANUARY 2010.
     Route: 048
     Dates: start: 20100107
  2. BEVACIZUMAB [Suspect]
     Indication: COLON CANCER
     Dosage: CYCLE 1.
     Route: 042
     Dates: start: 20100107
  3. FLUOROURACIL [Suspect]
     Route: 042
     Dates: start: 20100217

REACTIONS (1)
  - ABORTION INDUCED [None]
